FAERS Safety Report 24232945 (Version 4)
Quarter: 2024Q4

REPORT INFORMATION
  Report Type: Spontaneous
  Country: US (occurrence: US)
  Receive Date: 20240821
  Receipt Date: 20241212
  Transmission Date: 20250115
  Serious: No
  Sender: BIOGEN
  Company Number: US-BIOGEN-2024BI01278636

PATIENT
  Sex: Female

DRUGS (1)
  1. TYSABRI [Suspect]
     Active Substance: NATALIZUMAB
     Indication: Multiple sclerosis
     Dosage: LAST ADMINISTRATION JUN-2024
     Route: 050
     Dates: start: 20170131

REACTIONS (4)
  - Musculoskeletal stiffness [Not Recovered/Not Resolved]
  - Joint lock [Not Recovered/Not Resolved]
  - Illness [Unknown]
  - Malaise [Unknown]

NARRATIVE: CASE EVENT DATE: 20240101
